FAERS Safety Report 12245103 (Version 1)
Quarter: 2016Q2

REPORT INFORMATION
  Report Type: Spontaneous
  Country: US (occurrence: US)
  Receive Date: 20160407
  Receipt Date: 20160407
  Transmission Date: 20160815
  Serious: No
  Sender: FDA-Public Use
  Company Number: US-BAYER-2016-066411

PATIENT
  Age: 76 Year
  Sex: Female
  Weight: 52.15 kg

DRUGS (1)
  1. CLARITIN [Suspect]
     Active Substance: LORATADINE
     Indication: SINUSITIS
     Dosage: 1 DF, QD
     Route: 048
     Dates: start: 20160401

REACTIONS (1)
  - Off label use [None]

NARRATIVE: CASE EVENT DATE: 20160401
